FAERS Safety Report 23997400 (Version 1)
Quarter: 2024Q2

REPORT INFORMATION
  Report Type: Spontaneous
  Country: CN (occurrence: CN)
  Receive Date: 20240621
  Receipt Date: 20240621
  Transmission Date: 20240715
  Serious: Yes (Other)
  Sender: FDA-Public Use
  Company Number: CN-ROCHE-10000003567

PATIENT
  Age: 46 Year
  Sex: Male
  Weight: 77 kg

DRUGS (3)
  1. BEVACIZUMAB [Suspect]
     Active Substance: BEVACIZUMAB
     Indication: Rectal cancer
     Route: 042
     Dates: start: 20240426, end: 20240426
  2. IRINOTECAN HYDROCHLORIDE [Suspect]
     Active Substance: IRINOTECAN HYDROCHLORIDE
     Indication: Rectal cancer
     Route: 042
     Dates: start: 20240427, end: 20240427
  3. RALTITREXED [Suspect]
     Active Substance: RALTITREXED
     Indication: Rectal cancer
     Route: 042
     Dates: start: 20240427, end: 20240427

REACTIONS (1)
  - Renal impairment [Recovering/Resolving]

NARRATIVE: CASE EVENT DATE: 20240604
